FAERS Safety Report 10096626 (Version 1)
Quarter: 2014Q2

REPORT INFORMATION
  Report Type: Spontaneous
  Country: US (occurrence: None)
  Receive Date: 20140421
  Receipt Date: 20140421
  Transmission Date: 20141212
  Serious: Yes (Other)
  Sender: FDA-Public Use
  Company Number: None

PATIENT
  Age: 62 Week
  Sex: Male
  Weight: 70 kg

DRUGS (1)
  1. METOLAZONE [Suspect]
     Indication: CARDIAC FAILURE
     Dosage: 7.5
     Route: 048

REACTIONS (3)
  - Hypersensitivity [None]
  - Rash [None]
  - Pruritus [None]
